FAERS Safety Report 5043413-X (Version None)
Quarter: 2006Q2

REPORT INFORMATION
  Report Type: 
  Country: None (occurrence: None)
  Receive Date: 20060601
  Receipt Date: 20060116
  Transmission Date: 20061013
  Serious: No
  Sender: FDA-Public Use
  Company Number: 2006PV007150

PATIENT
  Age: 52 Year
  Sex: Female
  Weight: 85.2762 kg

DRUGS (5)
  1. BYETTA [Suspect]
     Indication: DIABETES MELLITUS NON-INSULIN-DEPENDENT
     Dosage: SEE IMAGE
     Route: 058
     Dates: start: 20051213, end: 20060113
  2. BYETTA [Suspect]
     Indication: DIABETES MELLITUS NON-INSULIN-DEPENDENT
     Dosage: SEE IMAGE
     Route: 058
     Dates: start: 20060114
  3. GLUCOVANCE [Concomitant]
  4. PRILOSEC [Concomitant]
  5. TENORMIN [Concomitant]

REACTIONS (7)
  - BLOOD GLUCOSE INCREASED [None]
  - CARDIAC FLUTTER [None]
  - HEART RATE INCREASED [None]
  - NAUSEA [None]
  - REGURGITATION OF FOOD [None]
  - VOMITING [None]
  - WEIGHT DECREASED [None]
